FAERS Safety Report 9713306 (Version 4)
Quarter: 2014Q2

REPORT INFORMATION
  Report Type: Spontaneous
  Country: US (occurrence: US)
  Receive Date: 20131126
  Receipt Date: 20140421
  Transmission Date: 20141212
  Serious: Yes (Death, Hospitalization)
  Sender: FDA-Public Use
  Company Number: US-SA-2013SA120900

PATIENT
  Age: 73 Year
  Sex: Female
  Weight: 38.55 kg

DRUGS (9)
  1. LUMIZYME [Suspect]
     Indication: GLYCOGEN STORAGE DISEASE TYPE II
     Dosage: VIAL
     Route: 042
     Dates: start: 20120524, end: 20131108
  2. BENADRYL [Concomitant]
     Indication: PREMEDICATION
     Route: 048
  3. TYLENOL [Concomitant]
     Indication: PREMEDICATION
     Route: 048
  4. TYLENOL [Concomitant]
     Indication: PAIN
     Route: 048
  5. TYLENOL [Concomitant]
     Indication: PYREXIA
     Route: 048
  6. NAMENDA [Concomitant]
     Indication: DEMENTIA ALZHEIMER^S TYPE
  7. MULTIVITAMINS [Concomitant]
  8. ARICEPT [Concomitant]
     Indication: DEMENTIA ALZHEIMER^S TYPE
  9. COLACE [Concomitant]
     Indication: LAXATIVE SUPPORTIVE CARE

REACTIONS (2)
  - Death [Fatal]
  - Pneumothorax [Not Recovered/Not Resolved]
